FAERS Safety Report 7246191-9 (Version None)
Quarter: 2011Q1

REPORT INFORMATION
  Report Type: 
  Country: None (occurrence: None)
  Receive Date: 20110126
  Receipt Date: 20110121
  Transmission Date: 20110831
  Serious: Yes (Hospitalization, Other)
  Sender: FDA-Public Use
  Company Number: B0662466A

PATIENT
  Sex: Male
  Weight: 64 kg

DRUGS (4)
  1. KIVEXA [Concomitant]
     Route: 048
     Dates: start: 20050630
  2. NORVIR [Concomitant]
     Route: 048
     Dates: start: 20050630
  3. TELZIR [Concomitant]
     Route: 048
     Dates: start: 20050630
  4. MARAVIROC [Suspect]
     Indication: HIV INFECTION
     Dosage: 300MG TWICE PER DAY
     Route: 048
     Dates: start: 20050630

REACTIONS (2)
  - BENIGN SALIVARY GLAND NEOPLASM [None]
  - METASTATIC NEOPLASM [None]
